FAERS Safety Report 7740016-0 (Version None)
Quarter: 2011Q3

REPORT INFORMATION
  Report Type: 
  Country: None (occurrence: None)
  Receive Date: 20110906
  Receipt Date: 20110826
  Transmission Date: 20111222
  Serious: Yes (Other)
  Sender: FDA-Public Use
  Company Number: CIP11001409

PATIENT
  Age: 80 Year
  Sex: Female

DRUGS (11)
  1. ACTONEL [Suspect]
     Indication: OSTEOPOROSIS
     Dosage: 2.5 MG DAILY, ORAL
     Route: 048
     Dates: start: 20080714, end: 20100218
  2. ACTONEL [Suspect]
     Indication: OSTEOPOROSIS
     Dosage: 2.5 MG DAILY, ORAL
     Route: 048
     Dates: start: 20100426, end: 20110407
  3. DRUGS FOR FUNCTIONAL GASTROINTEST. [Concomitant]
  4. ASZES NICHIIKO (FELBINAC) [Concomitant]
  5. FAMOSTAGINE (FAMOTIDINE) [Concomitant]
  6. GARASONE [Concomitant]
  7. SHAKUYAKUKANZOUTOU (HERBAL EXTRACT NOS) [Concomitant]
  8. GOREI-SAN (HERBAL EXTRACT NOS) [Concomitant]
  9. CALCIUM + VITAMIN D (CALCIUM, COLECALCIFEROL) [Concomitant]
  10. HIRUDOID (HEPARINOID) [Concomitant]
  11. CALCICHEW (CALCIUM CARBONATE) [Concomitant]

REACTIONS (16)
  - CHRONIC OBSTRUCTIVE PULMONARY DISEASE [None]
  - LYMPHADENITIS [None]
  - MUSCLE SPASMS [None]
  - RHEUMATOID ARTHRITIS [None]
  - CHEST PAIN [None]
  - NASOPHARYNGITIS [None]
  - MUSCULOSKELETAL PAIN [None]
  - CONSTIPATION [None]
  - LUNG CYST [None]
  - BLOOD LACTATE DEHYDROGENASE INCREASED [None]
  - INTERSTITIAL LUNG DISEASE [None]
  - UPPER RESPIRATORY TRACT INFLAMMATION [None]
  - PAIN IN EXTREMITY [None]
  - ASTHMA [None]
  - BRONCHITIS [None]
  - LUNG NEOPLASM [None]
